FAERS Safety Report 8414330-X (Version None)
Quarter: 2012Q2

REPORT INFORMATION
  Report Type: 
  Country: None (occurrence: None)
  Receive Date: 20120605
  Receipt Date: 20120531
  Transmission Date: 20120825
  Serious: Yes (Other)
  Sender: FDA-Public Use
  Company Number: US-PURDUE-USA-2012-0087789

PATIENT
  Sex: Male
  Weight: 67.075 kg

DRUGS (10)
  1. PROVENGE [Suspect]
     Indication: PROSTATE CANCER
     Dosage: 250 ML, UNK
     Route: 042
     Dates: start: 20120329, end: 20120329
  2. MS CONTIN [Suspect]
     Indication: PAIN
     Dosage: 2 MG, UNK
     Route: 048
  3. MULTIVITAMIN                       /00097801/ [Concomitant]
  4. CALCIUM CARBONATE [Concomitant]
  5. DEXAMETHASONE [Suspect]
     Indication: PRODUCT USED FOR UNKNOWN INDICATION
  6. PROVENGE [Suspect]
     Indication: PROSTATE CANCER METASTATIC
  7. LEUPROLIDE ACETATE [Concomitant]
  8. VICODIN [Concomitant]
  9. OMEPRAZOLE [Concomitant]
  10. DIGESTIVE ENZYMES [Suspect]

REACTIONS (6)
  - ANAEMIA [None]
  - HYPOXIA [None]
  - ATELECTASIS [None]
  - THROMBOCYTOPENIA [None]
  - SINUS TACHYCARDIA [None]
  - DELIRIUM [None]
